FAERS Safety Report 6793957-5 (Version None)
Quarter: 2010Q2

REPORT INFORMATION
  Report Type: 
  Country: None (occurrence: None)
  Receive Date: 20100624
  Receipt Date: 20070927
  Transmission Date: 20101027
  Serious: No
  Sender: FDA-Public Use
  Company Number: US-PFIZER INC-ENC200700170

PATIENT
  Age: 73 Year
  Sex: Female

DRUGS (2)
  1. ARGATROBAN [Suspect]
     Indication: HEPARIN-INDUCED THROMBOCYTOPENIA
     Dosage: 1 MCG/KG/MIN,FREQUENCY:  UNK
     Route: 042
     Dates: start: 20070926, end: 20070901
  2. ARGATROBAN [Suspect]
     Dosage: 0.6 MCG/KG/MIN,FREQUENCY:  UNK
     Route: 042
     Dates: start: 20070901

REACTIONS (1)
  - COAGULATION TIME PROLONGED [None]
